FAERS Safety Report 20500347 (Version 1)
Quarter: 2022Q1

REPORT INFORMATION
  Report Type: Spontaneous
  Country: CA (occurrence: CA)
  Receive Date: 20220222
  Receipt Date: 20220222
  Transmission Date: 20220423
  Serious: Yes (Other)
  Sender: FDA-Public Use
  Company Number: None

PATIENT
  Sex: Male

DRUGS (1)
  1. CISPLATIN [Suspect]
     Active Substance: CISPLATIN
     Indication: Lymphoma
     Route: 065

REACTIONS (5)
  - Lymphoma [Unknown]
  - General physical health deterioration [Unknown]
  - Illness [Unknown]
  - Condition aggravated [Unknown]
  - Off label use [Unknown]
